FAERS Safety Report 5504323-4 (Version None)
Quarter: 2007Q4

REPORT INFORMATION
  Report Type: 
  Country: None (occurrence: None)
  Receive Date: 20071101
  Receipt Date: 20071022
  Transmission Date: 20080405
  Serious: Yes (Hospitalization)
  Sender: FDA-Public Use
  Company Number: US-SHR-US-2007-040261

PATIENT
  Age: 50 Year
  Sex: Female

DRUGS (3)
  1. BETASERON [Suspect]
     Indication: RELAPSING-REMITTING MULTIPLE SCLEROSIS
     Route: 058
     Dates: start: 20070720
  2. BETASERON [Suspect]
     Dosage: 4 MIU, EVERY 2D
     Route: 058
     Dates: start: 20070805
  3. BETASERON [Suspect]
     Dosage: 8 MIU, EVERY 2D
     Route: 058
     Dates: end: 20071010

REACTIONS (8)
  - ASTHENIA [None]
  - DEHYDRATION [None]
  - GALLBLADDER DISORDER [None]
  - INJECTION SITE BRUISING [None]
  - NON-CARDIAC CHEST PAIN [None]
  - PYREXIA [None]
  - VIRAL INFECTION [None]
  - VOMITING [None]
